FAERS Safety Report 4745021-4 (Version None)
Quarter: 2005Q3

REPORT INFORMATION
  Report Type: 
  Country: None (occurrence: None)
  Receive Date: 20050811
  Receipt Date: 20050803
  Transmission Date: 20060218
  Serious: Yes (Hospitalization)
  Sender: FDA-Public Use
  Company Number: GBWYE882003AUG05

PATIENT
  Age: 75 Year

DRUGS (16)
  1. ADVIL [Suspect]
     Indication: OSTEOPOROSIS
     Dosage: 400 MG 3X PER 1 DAY ORAL
     Route: 048
     Dates: start: 20050702, end: 20050711
  2. ADVIL [Suspect]
     Indication: PROPHYLAXIS
     Dosage: 400 MG 3X PER 1 DAY ORAL
     Route: 048
     Dates: start: 20050702, end: 20050711
  3. ALENDRONIC ACID (ALENDRONIC ACID, , 0) [Suspect]
     Indication: OSTEOPOROSIS
     Dosage: 70 MG 1X PER 1 1 WK ORAL
     Route: 048
     Dates: start: 20050709, end: 20050713
  4. ALENDRONIC ACID (ALENDRONIC ACID, , 0) [Suspect]
     Indication: PROPHYLAXIS
     Dosage: 70 MG 1X PER 1 1 WK ORAL
     Route: 048
     Dates: start: 20050709, end: 20050713
  5. PREDNISOLONE [Suspect]
     Dosage: 40 MG 1X PER 1 DEC
     Dates: start: 20050709, end: 20050713
  6. PHENOBARBITONE (PHENOBARBITAL) [Concomitant]
  7. MYSOLINE [Concomitant]
  8. SPIRIVA [Concomitant]
  9. ALBUTEROL SULFATE HFA [Concomitant]
  10. ORAMORPH SR [Concomitant]
  11. QUININE SULFATE [Concomitant]
  12. ADCAL D3 (CALCIUM CARBONATE/COLECALCIFEROL) [Concomitant]
  13. SYMBICORT (BUDESONIDE/FORMOTEROL FUMARATE) [Concomitant]
  14. ACETAMINOPHEN [Concomitant]
  15. LACTULOSE [Concomitant]
  16. ENOXAPARIN SODIUM [Concomitant]

REACTIONS (2)
  - OESOPHAGEAL ULCER [None]
  - REFLUX OESOPHAGITIS [None]
